FAERS Safety Report 8818558 (Version 1)
Quarter: 2012Q4

REPORT INFORMATION
  Report Type: Spontaneous
  Country: US (occurrence: None)
  Receive Date: 20121002
  Receipt Date: 20121002
  Transmission Date: 20130627
  Serious: Yes (Hospitalization, Disabling, Other)
  Sender: FDA-Public Use
  Company Number: 2012MA011544

PATIENT
  Age: 59 Year
  Sex: Female

DRUGS (10)
  1. LORAZEPAM [Suspect]
     Indication: ANXIETY
  2. CITALOPRAM [Concomitant]
  3. IMIPRAMINE [Concomitant]
  4. TRIFLUOPERAZINE [Concomitant]
  5. DIGOXIN [Concomitant]
  6. FUROSEMIDE [Concomitant]
  7. METFORMIN [Concomitant]
  8. MULTIVITAMIN [Concomitant]
  9. NIACIN [Concomitant]
  10. POTASSIUM CHLORIDE [Concomitant]

REACTIONS (8)
  - Disorientation [None]
  - Catatonia [None]
  - Tachycardia [None]
  - Post procedural complication [None]
  - Drug withdrawal syndrome [None]
  - Anxiety [None]
  - Pyrexia [None]
  - Unresponsive to stimuli [None]
